FAERS Safety Report 6741997-4 (Version None)
Quarter: 2010Q2

REPORT INFORMATION
  Report Type: 
  Country: None (occurrence: None)
  Receive Date: 20100526
  Receipt Date: 20100521
  Transmission Date: 20101027
  Serious: Yes (Hospitalization, Other)
  Sender: FDA-Public Use
  Company Number: US-RB-009801-10

PATIENT
  Age: 53 Year
  Sex: Female

DRUGS (3)
  1. SUBOXONE [Suspect]
     Indication: PAIN
     Route: 060
     Dates: start: 20100101
  2. SUBOXONE [Suspect]
     Route: 060
     Dates: start: 20100101
  3. SYNTHROID [Concomitant]
     Indication: HYPOTHYROIDISM
     Dosage: DOSING DETAILS UNKNOWN
     Route: 065

REACTIONS (2)
  - LONG QT SYNDROME [None]
  - TOOTH FRACTURE [None]
